FAERS Safety Report 10821472 (Version 1)
Quarter: 2015Q1

REPORT INFORMATION
  Report Type: Report from Study
  Country: US (occurrence: US)
  Receive Date: 20150218
  Receipt Date: 20150218
  Transmission Date: 20150721
  Serious: No
  Sender: FDA-Public Use
  Company Number: US-ABBVIE-14K-163-1305857-00

PATIENT
  Age: 47 Year
  Sex: Female

DRUGS (3)
  1. HUMIRA [Suspect]
     Active Substance: ADALIMUMAB
     Indication: CROHN^S DISEASE
     Route: 065
     Dates: start: 20141008, end: 20141008
  2. HUMIRA [Suspect]
     Active Substance: ADALIMUMAB
     Route: 065
  3. HUMIRA [Suspect]
     Active Substance: ADALIMUMAB
     Route: 065
     Dates: start: 20141022, end: 20141022

REACTIONS (7)
  - Cough [Not Recovered/Not Resolved]
  - Epistaxis [Recovered/Resolved]
  - Productive cough [Not Recovered/Not Resolved]
  - Epistaxis [Unknown]
  - Rhinorrhoea [Unknown]
  - Upper respiratory tract infection [Not Recovered/Not Resolved]
  - Postmenopausal haemorrhage [Unknown]

NARRATIVE: CASE EVENT DATE: 201410
